FAERS Safety Report 7971314-3 (Version None)
Quarter: 2011Q4

REPORT INFORMATION
  Report Type: 
  Country: None (occurrence: None)
  Receive Date: 20111212
  Receipt Date: 20111207
  Transmission Date: 20120403
  Serious: Yes (Death, Hospitalization, Other)
  Sender: FDA-Public Use
  Company Number: PHHY2011FR107295

PATIENT
  Age: 70 Year
  Sex: Male

DRUGS (1)
  1. GLEEVEC [Suspect]
     Indication: GASTROINTESTINAL STROMAL TUMOUR
     Dosage: 400 MG, DAILY
     Dates: start: 20110530, end: 20111107

REACTIONS (7)
  - DISORIENTATION [None]
  - COMA [None]
  - METASTASES TO LIVER [None]
  - HEPATIC FAILURE [None]
  - CHOLELITHIASIS [None]
  - AGITATION [None]
  - RENAL FAILURE [None]
